FAERS Safety Report 4550489-2 (Version None)
Quarter: 2004Q4

REPORT INFORMATION
  Report Type: 
  Country: None (occurrence: None)
  Receive Date: 20041217
  Receipt Date: 20040920
  Transmission Date: 20050328
  Serious: Yes (Hospitalization)
  Sender: FDA-Public Use
  Company Number: 2004-BP-08571BP

PATIENT
  Age: 51 Year
  Sex: Female
  Weight: 50.3 kg

DRUGS (8)
  1. SPIRIVA [Suspect]
     Dosage: IH
     Route: 055
     Dates: start: 20040801, end: 20040901
  2. PREDNISONE [Concomitant]
  3. ALBUTEROL [Concomitant]
  4. PAXIL [Concomitant]
  5. KLONOPIN [Concomitant]
  6. SINGULAIR (MONTELUKAST) [Concomitant]
  7. PROTONIX [Concomitant]
  8. LEVOFLOXACIN [Concomitant]

REACTIONS (3)
  - HEART RATE INCREASED [None]
  - PALPITATIONS [None]
  - SUPRAVENTRICULAR TACHYCARDIA [None]
